FAERS Safety Report 8619476-9 (Version None)
Quarter: 2012Q3

REPORT INFORMATION
  Report Type: 
  Country: None (occurrence: None)
  Receive Date: 20120824
  Receipt Date: 20120821
  Transmission Date: 20120928
  Serious: Yes (Death, Life-Threatening, Hospitalization, Other)
  Sender: FDA-Public Use
  Company Number: JP-PFIZER INC-2011305795

PATIENT
  Age: 93 Year
  Sex: Male
  Weight: 38 kg

DRUGS (7)
  1. LINBULANE [Concomitant]
     Dosage: 20 MG, 3X/DAY
     Route: 048
     Dates: end: 20111214
  2. FAMOTIDINE [Concomitant]
     Dosage: 20 MG, 1X/DAY
     Route: 048
     Dates: end: 20111214
  3. TAMSULOSIN HCL [Concomitant]
     Dosage: 0.2 MG, 1X/DAY
     Route: 048
     Dates: end: 20111214
  4. LORAZEPAM [Concomitant]
     Dosage: 0.5 MG, 1X/DAY
     Route: 048
     Dates: end: 20111214
  5. LENDORMIN [Concomitant]
     Dosage: 0.25 MG, 1X/DAY
     Route: 048
     Dates: end: 20111214
  6. ZOLOFT [Suspect]
     Dosage: 25 MG, 1X/DAY
     Route: 048
     Dates: end: 20111214
  7. SG COMBINATION GRANULES [Concomitant]
     Dosage: UNK
     Route: 048
     Dates: end: 20111214

REACTIONS (4)
  - PNEUMONIA [None]
  - SEPSIS [None]
  - INAPPROPRIATE ANTIDIURETIC HORMONE SECRETION [None]
  - CARDIAC FAILURE [None]
